FAERS Safety Report 7236242-X (Version None)
Quarter: 2011Q1

REPORT INFORMATION
  Report Type: 
  Country: None (occurrence: None)
  Receive Date: 20110120
  Receipt Date: 20110111
  Transmission Date: 20110831
  Serious: Yes (Other)
  Sender: FDA-Public Use
  Company Number: US-MERCK-0903USA02258

PATIENT
  Age: 49 Year
  Sex: Female
  Weight: 91 kg

DRUGS (3)
  1. FOSAMAX [Suspect]
     Indication: OSTEOPOROSIS
     Route: 048
     Dates: start: 20030601, end: 20080601
  2. VIVELLE [Concomitant]
     Indication: HORMONE REPLACEMENT THERAPY
     Route: 065
     Dates: start: 19920101, end: 20081101
  3. CALCIUM (UNSPECIFIED) AND VITAMIN D (UNSPECIFIED) [Concomitant]
     Indication: OSTEOPOROSIS
     Route: 065
     Dates: start: 20030601

REACTIONS (40)
  - BLOOD PRESSURE INCREASED [None]
  - SPINAL COMPRESSION FRACTURE [None]
  - ONYCHOMYCOSIS [None]
  - TEMPOROMANDIBULAR JOINT SYNDROME [None]
  - AGEUSIA [None]
  - WEIGHT DECREASED [None]
  - TENDONITIS [None]
  - POOR QUALITY SLEEP [None]
  - OSTEOARTHRITIS [None]
  - HIP FRACTURE [None]
  - CARPAL TUNNEL SYNDROME [None]
  - NASAL CONGESTION [None]
  - HYPERTENSION [None]
  - DYSGEUSIA [None]
  - SNORING [None]
  - VITAMIN D DEFICIENCY [None]
  - PLANTAR FASCIITIS [None]
  - GASTROOESOPHAGEAL REFLUX DISEASE [None]
  - DRUG INEFFECTIVE [None]
  - OEDEMA PERIPHERAL [None]
  - ARTHRALGIA [None]
  - SYNOVITIS [None]
  - STRESS FRACTURE [None]
  - FEMUR FRACTURE [None]
  - OSTEOPENIA [None]
  - CORNEAL DYSTROPHY [None]
  - FATIGUE [None]
  - ALOPECIA [None]
  - PAIN IN EXTREMITY [None]
  - STRESS [None]
  - TOOTH FRACTURE [None]
  - RHINORRHOEA [None]
  - PARAESTHESIA [None]
  - FOOT FRACTURE [None]
  - WEIGHT INCREASED [None]
  - PLEURITIC PAIN [None]
  - DEVICE INEFFECTIVE [None]
  - MUSCULOSKELETAL STIFFNESS [None]
  - VARICOSE VEIN [None]
  - SIALOADENITIS [None]
